FAERS Safety Report 19974873 (Version 1)
Quarter: 2021Q4

REPORT INFORMATION
  Report Type: Spontaneous
  Country: US (occurrence: US)
  Receive Date: 20211020
  Receipt Date: 20211020
  Transmission Date: 20220303
  Serious: No
  Sender: FDA-Public Use
  Company Number: US-ALLERGAN-2040723US

PATIENT
  Age: 90 Year
  Sex: Male
  Weight: 78.91 kg

DRUGS (18)
  1. LINZESS [Suspect]
     Active Substance: LINACLOTIDE
     Indication: Constipation
     Dosage: 290 ?G, QD
     Route: 048
     Dates: start: 2017
  2. MIRALAX [Concomitant]
     Active Substance: POLYETHYLENE GLYCOL 3350
     Dosage: UNK
     Dates: end: 202010
  3. FINASTERIDE [Concomitant]
     Active Substance: FINASTERIDE
  4. LEVOTHYROXINE [Concomitant]
     Active Substance: LEVOTHYROXINE
  5. FENTANYL [Concomitant]
     Active Substance: FENTANYL
     Indication: Gastrointestinal pain
     Dosage: UNK
     Route: 065
  6. GABAPENTIN [Concomitant]
     Active Substance: GABAPENTIN
  7. HYDROCODONE [Concomitant]
     Active Substance: HYDROCODONE
     Indication: Gastrointestinal pain
     Dosage: UNK
     Route: 065
  8. DULOXETINE [Concomitant]
     Active Substance: DULOXETINE
  9. FUROSEMIDE [Concomitant]
     Active Substance: FUROSEMIDE
  10. ASPIRIN [Concomitant]
     Active Substance: ASPIRIN
  11. VITAMINS [Concomitant]
     Active Substance: VITAMINS
  12. CHLORTHALIDONE [Concomitant]
     Active Substance: CHLORTHALIDONE
     Indication: Prophylaxis
  13. CREON [Concomitant]
     Active Substance: PANCRELIPASE AMYLASE\PANCRELIPASE LIPASE\PANCRELIPASE PROTEASE
     Indication: Pancreatic disorder
  14. STOOL SOFTENER (DOCUSATE) [Concomitant]
     Active Substance: DOCUSATE
  15. POLYETHYLENE GLYCOL powder [Concomitant]
     Indication: Constipation
     Dosage: UNK
     Route: 048
  16. METAMUCIL [Concomitant]
     Active Substance: PLANTAGO SEED
     Indication: Constipation
     Dosage: UNK
     Route: 048
  17. Testoster [Concomitant]
     Indication: Pancreatic disorder
  18. Unspecified injections [Concomitant]
     Indication: Gastrointestinal pain

REACTIONS (6)
  - Foreign body in throat [Recovered/Resolved]
  - Dysphagia [Recovered/Resolved]
  - Anal incontinence [Unknown]
  - Off label use [Unknown]
  - Abdominal pain [Unknown]
  - Drug ineffective [Unknown]

NARRATIVE: CASE EVENT DATE: 20201021
